FAERS Safety Report 12319659 (Version 2)
Quarter: 2016Q2

REPORT INFORMATION
  Report Type: Spontaneous
  Country: US (occurrence: US)
  Receive Date: 20160429
  Receipt Date: 20160509
  Transmission Date: 20160815
  Serious: Yes (Other)
  Sender: FDA-Public Use
  Company Number: US-MDT-ADR-2016-00778

PATIENT
  Age: 48 Year
  Sex: Female

DRUGS (3)
  1. COMPOUNDED BACLOFEN [Suspect]
     Active Substance: BACLOFEN
     Dosage: 7.04MCG/DAY
     Route: 037
  2. DILAUDID [Suspect]
     Active Substance: HYDROMORPHONE HYDROCHLORIDE
     Dosage: 0.999MG/DAY
     Route: 037
  3. ORAL BACLOFEN [Suspect]
     Active Substance: BACLOFEN
     Route: 048

REACTIONS (8)
  - Product preparation error [Unknown]
  - Gait disturbance [Unknown]
  - Unevaluable event [Unknown]
  - Multiple sclerosis relapse [Unknown]
  - Drug withdrawal syndrome [Unknown]
  - Hemiplegia [Unknown]
  - Malaise [Unknown]
  - Clonic convulsion [Unknown]
